FAERS Safety Report 8025712-2 (Version None)
Quarter: 2012Q1

REPORT INFORMATION
  Report Type: 
  Country: None (occurrence: None)
  Receive Date: 20120105
  Receipt Date: 20110321
  Transmission Date: 20120608
  Serious: No
  Sender: FDA-Public Use
  Company Number: US-ABBOTT-10P-163-0684419-00

PATIENT
  Sex: Female
  Weight: 90.8 kg

DRUGS (6)
  1. SYNTHROID [Suspect]
     Dates: start: 20110201
  2. SYNTHROID [Suspect]
     Indication: AUTOIMMUNE THYROIDITIS
     Dates: start: 20101104
  3. MULTI-VITAMIN [Concomitant]
     Indication: PRODUCT USED FOR UNKNOWN INDICATION
  4. SYNTHROID [Suspect]
     Indication: AUTOIMMUNE THYROIDITIS
     Dates: start: 20100501, end: 20110201
  5. SYNTHROID [Suspect]
     Indication: AUTOIMMUNE THYROIDITIS
  6. SYNTHROID [Suspect]
     Dosage: GRADUAL INCREASE

REACTIONS (9)
  - MYALGIA [None]
  - HYPOGLYCAEMIA [None]
  - TEMPERATURE INTOLERANCE [None]
  - MUSCULOSKELETAL STIFFNESS [None]
  - FATIGUE [None]
  - DYSPNOEA [None]
  - WEIGHT INCREASED [None]
  - MUSCULAR WEAKNESS [None]
  - FEELING ABNORMAL [None]
